FAERS Safety Report 5018218-6 (Version None)
Quarter: 2006Q2

REPORT INFORMATION
  Report Type: 
  Country: None (occurrence: None)
  Receive Date: 20060530
  Receipt Date: 20060517
  Transmission Date: 20061013
  Serious: Yes (Death, Other)
  Sender: FDA-Public Use
  Company Number: 2006064459

PATIENT
  Age: 57 Year
  Sex: Male

DRUGS (8)
  1. CAVERJECT [Suspect]
     Indication: ORGANIC ERECTILE DYSFUNCTION
     Dosage: 1 TOTAL
     Dates: start: 20051211, end: 20051211
  2. CLOPIDOGREL [Suspect]
     Indication: MYOCARDIAL ISCHAEMIA
     Dosage: 75 MG (75 MG, 1 IN 1 D), ORAL
     Route: 048
     Dates: end: 20051211
  3. ASPIRIN [Suspect]
     Indication: MYOCARDIAL ISCHAEMIA
     Dosage: 100 MG (100 MG, 1 IN 1 D), ORAL
     Route: 048
     Dates: start: 19930101, end: 20051211
  4. ENALAPRIL [Concomitant]
  5. GLIMEPIRIDE [Concomitant]
  6. GEMFIBROZIL [Concomitant]
  7. DILTIAZEM [Concomitant]
  8. PRAVASTATIN [Concomitant]

REACTIONS (1)
  - SUBARACHNOID HAEMORRHAGE [None]
